FAERS Safety Report 25228223 (Version 2)
Quarter: 2025Q2

REPORT INFORMATION
  Report Type: Spontaneous
  Country: PE (occurrence: PE)
  Receive Date: 20250423
  Receipt Date: 20250512
  Transmission Date: 20250716
  Serious: Yes (Other)
  Sender: ROCHE
  Company Number: PE-ROCHE-10000258739

PATIENT
  Sex: Female

DRUGS (1)
  1. TRASTUZUMAB [Suspect]
     Active Substance: TRASTUZUMAB
     Indication: Breast cancer
     Route: 042
     Dates: start: 2023, end: 2023

REACTIONS (5)
  - Mastectomy [Recovered/Resolved]
  - Diabetes mellitus [Unknown]
  - Headache [Unknown]
  - Brain neoplasm [Unknown]
  - Breast mass [Unknown]

NARRATIVE: CASE EVENT DATE: 20241101
